FAERS Safety Report 10762374 (Version 1)
Quarter: 2015Q1

REPORT INFORMATION
  Report Type: Spontaneous
  Country: US (occurrence: None)
  Receive Date: 20150129
  Receipt Date: 20150129
  Transmission Date: 20150721
  Serious: Yes (Other)
  Sender: FDA-Public Use
  Company Number: 108470

PATIENT
  Sex: Female
  Weight: 75 kg

DRUGS (3)
  1. LORTAB (HYDROCODONE BITARTRATE; PARACETAMOL; PROMETHAZINE HYDROCHLORIDE) [Concomitant]
     Dates: start: 1999
  2. SOMA [Concomitant]
     Active Substance: CARISOPRODOL
     Dates: start: 1999
  3. KEPPRA [Suspect]
     Active Substance: LEVETIRACETAM
     Indication: SEIZURE
     Dates: start: 1999

REACTIONS (1)
  - Generalised tonic-clonic seizure [None]

NARRATIVE: CASE EVENT DATE: 1999
